FAERS Safety Report 23635978 (Version 5)
Quarter: 2024Q2

REPORT INFORMATION
  Report Type: Report from Study
  Country: AR (occurrence: AR)
  Receive Date: 20240315
  Receipt Date: 20240613
  Transmission Date: 20240716
  Serious: Yes (Hospitalization)
  Sender: FDA-Public Use
  Company Number: AR-002147023-NVSC2024AR037447

PATIENT
  Sex: Male

DRUGS (3)
  1. COSENTYX [Suspect]
     Active Substance: SECUKINUMAB
     Indication: Hidradenitis
     Dosage: 300 MG, BIW
     Route: 058
     Dates: start: 20231128
  2. CLINDAMYCIN [Concomitant]
     Active Substance: CLINDAMYCIN
     Indication: Product used for unknown indication
     Dosage: UNK
     Route: 065
  3. MEPREDNISONE [Concomitant]
     Active Substance: MEPREDNISONE
     Indication: Product used for unknown indication
     Dosage: UNK
     Route: 065

REACTIONS (7)
  - Infected fistula [Unknown]
  - Rash [Unknown]
  - Urticaria [Unknown]
  - Abscess [Unknown]
  - Acne [Unknown]
  - Nodule [Unknown]
  - Off label use [Unknown]
